FAERS Safety Report 6536509-4 (Version None)
Quarter: 2009Q4

REPORT INFORMATION
  Report Type: 
  Country: None (occurrence: None)
  Receive Date: 20091229
  Receipt Date: 20091027
  Transmission Date: 20100525
  Serious: No
  Sender: FDA-Public Use
  Company Number: 1000009726

PATIENT
  Age: 63 Year
  Sex: Female

DRUGS (9)
  1. BYSTOLIC [Suspect]
     Indication: HYPERTENSION
     Dosage: 5 MG (5 MG, 1 IN 1 D), ORAL
     Route: 048
     Dates: start: 20091021
  2. LUNESTA [Concomitant]
  3. AMARYL [Concomitant]
  4. ACTOS [Concomitant]
  5. CRESTOR [Concomitant]
  6. TRICOR [Concomitant]
  7. PROTONIX [Concomitant]
  8. ZYRTEC [Concomitant]
  9. CELEXA [Concomitant]

REACTIONS (1)
  - INSOMNIA [None]
